FAERS Safety Report 7309317-4 (Version None)
Quarter: 2011Q1

REPORT INFORMATION
  Report Type: 
  Country: None (occurrence: None)
  Receive Date: 20110223
  Receipt Date: 20110210
  Transmission Date: 20110831
  Serious: Yes (Hospitalization, Other)
  Sender: FDA-Public Use
  Company Number: US-ELI_LILLY_AND_COMPANY-US201009004548

PATIENT
  Sex: Female
  Weight: 64.853 kg

DRUGS (27)
  1. CLONIDINE [Concomitant]
     Indication: HYPERTENSION
     Dosage: 0.1 MG, 2/D
  2. FORTEO [Suspect]
     Dosage: 20 UG, DAILY (1/D)
     Route: 058
  3. CALCIUM [Concomitant]
  4. DARVOCET [Concomitant]
     Indication: PAIN
  5. FORTEO [Suspect]
     Indication: OSTEOPOROSIS
     Dosage: 20 UG, DAILY (1/D)
     Route: 058
     Dates: start: 20100112, end: 20101025
  6. ZYLOPRIM [Concomitant]
  7. COLACE [Concomitant]
     Dosage: 100 MG, 2/D
  8. MULTIVITAMIN [Concomitant]
     Dosage: UNK, DAILY (1/D)
  9. AZOR [Concomitant]
     Dosage: UNK, AS NEEDED
  10. CYANOCOBALAMIN [Concomitant]
     Dosage: 1000 UG, WEEKLY (1/W)
     Route: 058
  11. LOVENOX [Concomitant]
     Dosage: 1 MG/KG, UNK
  12. VITAMIN B-12 [Concomitant]
     Dosage: 1000 MG, WEEKLY (1/W)
     Route: 058
  13. PRILOSEC [Concomitant]
  14. REMERON [Concomitant]
  15. ASA [Concomitant]
  16. CHLORTHALIDONE [Concomitant]
  17. DELTALIN [Concomitant]
     Indication: OSTEOPOROSIS
  18. AZOR [Concomitant]
     Dosage: UNK, DAILY (1/D)
  19. LEVOXYL [Concomitant]
  20. ALDACTONE [Concomitant]
     Dosage: 12.5 MG, DAILY (1/D)
  21. DIURETICS [Concomitant]
  22. CALCIUM WITH VITAMIN D [Concomitant]
     Dosage: UNK, 2/D
  23. HEPARIN [Concomitant]
  24. CIPRO [Concomitant]
  25. FERROUS SULFATE TAB [Concomitant]
  26. METOPROLOL [Concomitant]
     Indication: HYPERTENSION
     Dosage: 25 MG, 2/D
  27. MIRALAX [Concomitant]

REACTIONS (16)
  - ARTHRITIS [None]
  - COLON CANCER STAGE I [None]
  - ORTHOSTATIC HYPOTENSION [None]
  - DIZZINESS [None]
  - COLON ADENOMA [None]
  - DIVERTICULUM INTESTINAL [None]
  - DEHYDRATION [None]
  - GAIT DISTURBANCE [None]
  - DIVERTICULITIS [None]
  - ASTHENIA [None]
  - FALL [None]
  - CHOLELITHIASIS [None]
  - PNEUMONIA [None]
  - MALIGNANT HYPERTENSION [None]
  - CONTUSION [None]
  - DEEP VEIN THROMBOSIS [None]
